FAERS Safety Report 16080890 (Version 2)
Quarter: 2019Q1

REPORT INFORMATION
  Report Type: Report from Study
  Country: IT (occurrence: IT)
  Receive Date: 20190316
  Receipt Date: 20190327
  Transmission Date: 20190418
  Serious: Yes (Hospitalization)
  Sender: FDA-Public Use
  Company Number: IT-ACCORD-112867

PATIENT
  Age: 30 Year
  Sex: Male

DRUGS (9)
  1. LEVETIRACETAM. [Suspect]
     Active Substance: LEVETIRACETAM
     Route: 048
     Dates: start: 20180716, end: 20180716
  2. BISOPROLOL [Suspect]
     Active Substance: BISOPROLOL
     Route: 048
     Dates: start: 20180716, end: 20180716
  3. FUROSEMIDE. [Suspect]
     Active Substance: FUROSEMIDE
     Route: 048
     Dates: start: 20180716, end: 20180716
  4. VALPROIC ACID. [Suspect]
     Active Substance: VALPROIC ACID
     Route: 048
     Dates: start: 20180716, end: 20180716
  5. SIMVASTATIN. [Suspect]
     Active Substance: SIMVASTATIN
     Dosage: STRENGTH: 20 MG
     Route: 048
     Dates: start: 20180716, end: 20180716
  6. CARBAMAZEPINE. [Suspect]
     Active Substance: CARBAMAZEPINE
     Route: 048
     Dates: start: 20180716, end: 20180716
  7. LAMOTRIGINE. [Suspect]
     Active Substance: LAMOTRIGINE
     Route: 048
     Dates: start: 20180716, end: 20180716
  8. LANSOPRAZOLE. [Suspect]
     Active Substance: LANSOPRAZOLE
     Route: 048
     Dates: start: 20180716, end: 20180716
  9. COUMADIN [Suspect]
     Active Substance: WARFARIN SODIUM
     Dosage: STRENGTH: 5 MG
     Route: 048
     Dates: start: 20180716, end: 20180716

REACTIONS (4)
  - Blood creatinine increased [Recovering/Resolving]
  - Sopor [Recovering/Resolving]
  - Blood creatine phosphokinase increased [Recovering/Resolving]
  - Drug abuse [Unknown]

NARRATIVE: CASE EVENT DATE: 20180716
